FAERS Safety Report 4838015-1 (Version None)
Quarter: 2005Q4

REPORT INFORMATION
  Report Type: 
  Country: None (occurrence: None)
  Receive Date: 20051123
  Receipt Date: 20051123
  Transmission Date: 20060501
  Serious: No
  Sender: FDA-Public Use
  Company Number: None

PATIENT

DRUGS (1)
  1. CLONAZEPAM [Suspect]

REACTIONS (3)
  - DRUG INEFFECTIVE [None]
  - MALAISE [None]
  - NAUSEA [None]
